FAERS Safety Report 22266242 (Version 1)
Quarter: 2023Q2

REPORT INFORMATION
  Report Type: Spontaneous
  Country: PL (occurrence: PL)
  Receive Date: 20230428
  Receipt Date: 20230428
  Transmission Date: 20230722
  Serious: Yes (Hospitalization)
  Sender: FDA-Public Use
  Company Number: PL-MYLANLABS-2023M1045280

PATIENT
  Age: 34 Year
  Sex: Male

DRUGS (4)
  1. OLANZAPINE [Suspect]
     Active Substance: OLANZAPINE
     Indication: Schizophrenia
     Dosage: UNK, LONG-ACTING INJECTABLE
     Route: 065
     Dates: start: 2021, end: 2021
  2. OLANZAPINE [Suspect]
     Active Substance: OLANZAPINE
     Dosage: 300 MILLIGRAM, LONG-ACTING INJECTABLE- FORTNIGHTLY
     Route: 065
     Dates: start: 2021
  3. OLANZAPINE [Suspect]
     Active Substance: OLANZAPINE
     Dosage: UNK, TREATMENT RE-INITIATED AND CONTINUED
     Route: 065
  4. VALPROIC ACID [Suspect]
     Active Substance: VALPROIC ACID
     Indication: Schizophrenia
     Dosage: UNK
     Route: 065
     Dates: start: 2021, end: 2021

REACTIONS (4)
  - Schizophrenia [Recovering/Resolving]
  - Rebound effect [Recovering/Resolving]
  - Treatment noncompliance [Unknown]
  - Intentional product misuse [Recovering/Resolving]

NARRATIVE: CASE EVENT DATE: 20210101
